FAERS Safety Report 14074197 (Version 7)
Quarter: 2019Q3

REPORT INFORMATION
  Report Type: Report from Study
  Country: US (occurrence: US)
  Receive Date: 20171011
  Receipt Date: 20190819
  Transmission Date: 20191004
  Serious: Yes (Other)
  Sender: FDA-Public Use
  Company Number: US-JAZZ-2017-US-012237

PATIENT
  Age: 54 Year
  Sex: Female

DRUGS (23)
  1. XYREM [Suspect]
     Active Substance: SODIUM OXYBATE
     Dosage: 4.25 G, BID
     Route: 048
     Dates: start: 201708, end: 20170917
  2. BACLOFEN. [Suspect]
     Active Substance: BACLOFEN
     Indication: MIGRAINE
  3. IRON [Suspect]
     Active Substance: IRON
     Dosage: 4.25G, BID
     Route: 048
     Dates: start: 201708, end: 20170917
  4. DULOXETINE HCL [Concomitant]
     Active Substance: DULOXETINE HYDROCHLORIDE
  5. XYREM [Suspect]
     Active Substance: SODIUM OXYBATE
     Dosage: 3.75 G, QD
     Route: 048
     Dates: start: 2017
  6. CALCIUM 600+D3 [Concomitant]
     Active Substance: CALCIUM CARBONATE\VITAMIN D
  7. XYREM [Suspect]
     Active Substance: SODIUM OXYBATE
     Indication: NARCOLEPSY
     Dosage: 2 G, BID
     Route: 048
     Dates: start: 201702, end: 201702
  8. MAGNESIUM OXIDE. [Concomitant]
     Active Substance: MAGNESIUM OXIDE
  9. TIZANIDINE HCL [Concomitant]
     Active Substance: TIZANIDINE HYDROCHLORIDE
  10. BUSPIRONE HCL [Concomitant]
     Active Substance: BUSPIRONE HYDROCHLORIDE
  11. NADOLOL. [Concomitant]
     Active Substance: NADOLOL
  12. XYREM [Suspect]
     Active Substance: SODIUM OXYBATE
     Indication: CATAPLEXY
     Dosage: DOSE ADJUSTMENT
     Route: 048
     Dates: start: 201702, end: 201708
  13. XYREM [Suspect]
     Active Substance: SODIUM OXYBATE
     Dosage: 4 G, QD
     Route: 048
     Dates: start: 2017
  14. IRON [Suspect]
     Active Substance: IRON
     Indication: IRON DEFICIENCY
     Dosage: 4G, BID
     Route: 048
     Dates: start: 2017
  15. IRON [Suspect]
     Active Substance: IRON
     Dosage: 2G, BID
     Route: 048
     Dates: start: 201701, end: 201702
  16. IRON [Suspect]
     Active Substance: IRON
     Route: 048
     Dates: start: 201702, end: 201708
  17. ELMIRON [Concomitant]
     Active Substance: PENTOSAN POLYSULFATE SODIUM
  18. TRIGONELLA FOENUM-GRAECUM [Concomitant]
     Active Substance: FENUGREEK LEAF\HERBALS
  19. NUVIGIL [Concomitant]
     Active Substance: ARMODAFINIL
  20. SIMVASTATIN. [Concomitant]
     Active Substance: SIMVASTATIN
  21. ASCORBIC ACID. [Concomitant]
     Active Substance: ASCORBIC ACID
  22. ESCITALOPRAM [Concomitant]
     Active Substance: ESCITALOPRAM OXALATE
  23. SEROQUEL [Concomitant]
     Active Substance: QUETIAPINE FUMARATE

REACTIONS (16)
  - Vertigo [Not Recovered/Not Resolved]
  - Endometrial ablation [Unknown]
  - Feeling abnormal [Recovered/Resolved]
  - Somnolence [Not Recovered/Not Resolved]
  - Feeling abnormal [Unknown]
  - Constipation [Unknown]
  - Hangover [Recovered/Resolved]
  - Headache [Recovered/Resolved]
  - Anaesthetic complication [Unknown]
  - Euphoric mood [Recovered/Resolved]
  - Pre-existing condition improved [Unknown]
  - Snoring [Unknown]
  - Vomiting [Recovered/Resolved]
  - Anxiety [Recovered/Resolved]
  - Inappropriate schedule of product administration [Unknown]
  - Migraine [Unknown]

NARRATIVE: CASE EVENT DATE: 2017
